FAERS Safety Report 25672042 (Version 1)
Quarter: 2025Q3

REPORT INFORMATION
  Report Type: Spontaneous
  Country: US (occurrence: None)
  Receive Date: 20250804
  Receipt Date: 20250804
  Transmission Date: 20251020
  Serious: Yes (Other)
  Sender: FDA-CTU
  Company Number: None

PATIENT
  Age: 45 Year
  Sex: Female

DRUGS (2)
  1. SODIUM IODIDE I-131 [Suspect]
     Active Substance: SODIUM IODIDE I-131
  2. VITAMIN D [Concomitant]
     Active Substance: VITAMIN D NOS

REACTIONS (8)
  - Vitreous floaters [None]
  - Lacrimation increased [None]
  - Rhinorrhoea [None]
  - Foreign body in throat [None]
  - Vision blurred [None]
  - Pain in extremity [None]
  - Arthralgia [None]
  - Productive cough [None]

NARRATIVE: CASE EVENT DATE: 20250731
